FAERS Safety Report 25518939 (Version 1)
Quarter: 2025Q3

REPORT INFORMATION
  Report Type: Report from Study
  Country: EU (occurrence: EU)
  Receive Date: 20250704
  Receipt Date: 20250704
  Transmission Date: 20251021
  Serious: Yes (Death, Hospitalization, Other)
  Sender: NORDIC PHARMA
  Company Number: EU-SANDOZ-SDZ2025DE042592

PATIENT
  Sex: Female

DRUGS (2)
  1. METHOTREXATE [Suspect]
     Active Substance: METHOTREXATE
     Indication: Product used for unknown indication
     Dosage: 20 MG, QW
     Route: 065
     Dates: end: 202501
  2. HYRIMOZ [Concomitant]
     Active Substance: ADALIMUMAB-ADAZ
     Indication: Product used for unknown indication
     Dosage: 40 MG, Q2W
     Route: 065
     Dates: end: 20250106

REACTIONS (7)
  - Cardiac failure [Fatal]
  - Cardiac failure [Unknown]
  - Ovarian mass [Unknown]
  - Septic shock [Fatal]
  - Back pain [Unknown]
  - Necrotising ulcerative gingivostomatitis [Unknown]
  - Pancytopenia [Unknown]

NARRATIVE: CASE EVENT DATE: 20240101
